FAERS Safety Report 5718641-8 (Version None)
Quarter: 2008Q2

REPORT INFORMATION
  Report Type: 
  Country: None (occurrence: None)
  Receive Date: 20080425
  Receipt Date: 20080416
  Transmission Date: 20081010
  Serious: Yes (Other)
  Sender: FDA-Public Use
  Company Number: AU-PFIZER INC-2008029252

PATIENT
  Age: 79 Year
  Sex: Male

DRUGS (1)
  1. ZOLOFT [Suspect]
     Dates: start: 20071201, end: 20080323

REACTIONS (7)
  - ASTHENIA [None]
  - DYSKINESIA [None]
  - EPILEPSY [None]
  - MALAISE [None]
  - MYALGIA [None]
  - POOR QUALITY SLEEP [None]
  - TREMOR [None]
